FAERS Safety Report 4323465-2 (Version None)
Quarter: 2004Q1

REPORT INFORMATION
  Report Type: 
  Country: None (occurrence: None)
  Receive Date: 20040325
  Receipt Date: 20040322
  Transmission Date: 20041129
  Serious: Yes (Other)
  Sender: FDA-Public Use
  Company Number: AU-ROCHE-362129

PATIENT
  Age: 54 Year
  Sex: Male
  Weight: 85 kg

DRUGS (2)
  1. XELODA [Suspect]
     Dosage: 1500 MG IN THE MORNING AND 2000 MG AT NIGHT
     Route: 048
     Dates: start: 20030307, end: 20030321
  2. XELODA [Suspect]
     Route: 048

REACTIONS (2)
  - GENITAL ULCERATION [None]
  - PENILE ULCERATION [None]
